FAERS Safety Report 14126161 (Version 1)
Quarter: 2017Q4

REPORT INFORMATION
  Report Type: Spontaneous
  Country: BE (occurrence: BE)
  Receive Date: 20171025
  Receipt Date: 20171025
  Transmission Date: 20180321
  Serious: Yes (Other)
  Sender: FDA-Public Use
  Company Number: BE-PFIZER INC-2017185211

PATIENT
  Age: 83 Year
  Sex: Male

DRUGS (2)
  1. SUTENT [Suspect]
     Active Substance: SUNITINIB MALATE
     Indication: METASTATIC RENAL CELL CARCINOMA
     Dosage: 37.5 MG, CYCLIC, 2 WEEKS ON, 1WEEK OFF
     Dates: start: 20170323
  2. SUTENT [Suspect]
     Active Substance: SUNITINIB MALATE
     Dosage: 25 MG, CYCLIC 2 WEEKS ON, 1 WEEK OFF
     Route: 048
     Dates: start: 20170425, end: 20170505

REACTIONS (22)
  - Incorrect dose administered [Unknown]
  - Vomiting [Not Recovered/Not Resolved]
  - Decreased appetite [Not Recovered/Not Resolved]
  - Hallucination [Unknown]
  - General physical health deterioration [Recovering/Resolving]
  - Hypersomnia [Unknown]
  - Mucosal inflammation [Unknown]
  - Dyspnoea exertional [Unknown]
  - Nausea [Not Recovered/Not Resolved]
  - Pyrexia [Unknown]
  - Diarrhoea [Not Recovered/Not Resolved]
  - Aphthous ulcer [Recovered/Resolved]
  - Hypertension [Unknown]
  - Asthenia [Not Recovered/Not Resolved]
  - Mental impairment [Unknown]
  - Fatigue [Unknown]
  - Fall [Unknown]
  - Incorrect drug administration duration [Unknown]
  - Gastroenteritis viral [Recovered/Resolved]
  - Weight decreased [Unknown]
  - Cough [Unknown]
  - Confusional state [Unknown]

NARRATIVE: CASE EVENT DATE: 20170403
